FAERS Safety Report 6300241-2 (Version None)
Quarter: 2009Q3

REPORT INFORMATION
  Report Type: 
  Country: None (occurrence: None)
  Receive Date: 20090803
  Receipt Date: 20090701
  Transmission Date: 20100115
  Serious: Yes (Other)
  Sender: FDA-Public Use
  Company Number: 2009008078

PATIENT
  Sex: Male

DRUGS (2)
  1. EFFENTORA (TABLETS) [Suspect]
     Dosage: (100 MCG), BU, 200 MCG, BU
     Route: 002
     Dates: end: 20090601
  2. EFFENTORA (TABLETS) [Suspect]
     Dosage: (100 MCG), BU, 200 MCG, BU
     Route: 002
     Dates: start: 20090401

REACTIONS (3)
  - DYSPHAGIA [None]
  - HEARING IMPAIRED [None]
  - SWELLING FACE [None]
